FAERS Safety Report 5355292-1 (Version None)
Quarter: 2007Q2

REPORT INFORMATION
  Report Type: 
  Country: None (occurrence: None)
  Receive Date: 20070611
  Receipt Date: 20070530
  Transmission Date: 20071010
  Serious: Yes (Other)
  Sender: FDA-Public Use
  Company Number: 2007322833

PATIENT
  Age: 43 Year
  Sex: Female
  Weight: 52.2 kg

DRUGS (3)
  1. BENADRYL [Suspect]
     Indication: HYPERSENSITIVITY
     Dosage: 2-4 TEASPOONS EVERY 24 HOURS, ORAL
     Route: 048
     Dates: start: 20070301
  2. XANAX [Concomitant]
  3. DRUG, UNSPECIFIED (DRUG, UNSPECIFIED) [Concomitant]

REACTIONS (5)
  - DRY SKIN [None]
  - HAIR TEXTURE ABNORMAL [None]
  - MUSCLE SPASMS [None]
  - PAIN [None]
  - URETHRAL OBSTRUCTION [None]
